FAERS Safety Report 15066813 (Version 1)
Quarter: 2018Q2

REPORT INFORMATION
  Report Type: Spontaneous
  Country: US (occurrence: US)
  Receive Date: 20180626
  Receipt Date: 20180626
  Transmission Date: 20180711
  Serious: No
  Sender: FDA-Public Use
  Company Number: US-PFIZER INC-2018257434

PATIENT
  Age: 35 Year
  Sex: Male

DRUGS (1)
  1. DEXTRAN [Suspect]
     Active Substance: DEXTRAN
     Dosage: UNK

REACTIONS (1)
  - Drug hypersensitivity [Unknown]
